FAERS Safety Report 16739123 (Version 1)
Quarter: 2019Q3

REPORT INFORMATION
  Report Type: Spontaneous
  Country: JP (occurrence: JP)
  Receive Date: 20190826
  Receipt Date: 20190826
  Transmission Date: 20191005
  Serious: Yes (Hospitalization, Other)
  Sender: FDA-Public Use
  Company Number: JP-TEVA-2019-JP-1044540

PATIENT
  Age: 83 Year
  Sex: Male

DRUGS (6)
  1. RITUXIMAB. [Suspect]
     Active Substance: RITUXIMAB
     Indication: MANTLE CELL LYMPHOMA
     Dosage: (FIRST CYCLE)
     Route: 041
     Dates: start: 201209
  2. SULFAMETHOXAZOLE AND TRIMETHOPRIM [Suspect]
     Active Substance: SULFAMETHOXAZOLE\TRIMETHOPRIM
     Route: 065
     Dates: start: 20130205, end: 20130211
  3. RITUXIMAB. [Suspect]
     Active Substance: RITUXIMAB
     Dosage: (FIFTH CYCLE)
     Route: 041
     Dates: start: 201303
  4. SULFAMETHOXAZOLE AND TRIMETHOPRIM [Suspect]
     Active Substance: SULFAMETHOXAZOLE\TRIMETHOPRIM
     Indication: PNEUMOCYSTIS JIROVECII PNEUMONIA
     Dosage: 9 DF (400/80 MG TABLET), ONCE DAILY
     Route: 065
     Dates: start: 20130128, end: 20130211
  5. BENDAMUSTINE HYDROCHLORIDE. [Suspect]
     Active Substance: BENDAMUSTINE HYDROCHLORIDE
     Indication: MANTLE CELL LYMPHOMA
     Dosage: 90 MG/M2X1/DAY, CYCLIC (FIRST CYCLE)
     Route: 042
     Dates: start: 20120920, end: 20120921
  6. BENDAMUSTINE HYDROCHLORIDE. [Suspect]
     Active Substance: BENDAMUSTINE HYDROCHLORIDE
     Dosage: 90 MG/M2X1/DAY, CYCLIC (FIFTH CYCLE)
     Route: 042
     Dates: start: 20130115, end: 20130116

REACTIONS (5)
  - Lymphocyte count decreased [Recovered/Resolved]
  - Prescribed underdose [Unknown]
  - Nephropathy toxic [Unknown]
  - Cytopenia [Unknown]
  - Pneumocystis jirovecii pneumonia [Recovered/Resolved]

NARRATIVE: CASE EVENT DATE: 20120920
